FAERS Safety Report 14313010 (Version 1)
Quarter: 2017Q4

REPORT INFORMATION
  Report Type: Spontaneous
  Country: US (occurrence: US)
  Receive Date: 20171220
  Receipt Date: 20171220
  Transmission Date: 20180321
  Serious: Yes (Hospitalization)
  Sender: FDA-Public Use
  Company Number: None

PATIENT
  Age: 64 Year
  Sex: Male

DRUGS (1)
  1. CARVEDILOL. [Suspect]
     Active Substance: CARVEDILOL
     Indication: HYPERTENSION
     Route: 048
     Dates: start: 20140320

REACTIONS (6)
  - Fall [None]
  - Hypovolaemia [None]
  - Sinus bradycardia [None]
  - Dizziness [None]
  - Presyncope [None]
  - Orthostatic intolerance [None]

NARRATIVE: CASE EVENT DATE: 20171114
